FAERS Safety Report 10729122 (Version 1)
Quarter: 2015Q1

REPORT INFORMATION
  Report Type: Spontaneous
  Country: US (occurrence: None)
  Receive Date: 20150120
  Receipt Date: 20150120
  Transmission Date: 20150721
  Serious: No
  Sender: FDA-Public Use
  Company Number: None

PATIENT
  Age: 44 Year
  Sex: Female

DRUGS (2)
  1. TRANEXAMIC ACID 650MG TABLETS WATSON LABORATORIES, INC [Suspect]
     Active Substance: TRANEXAMIC ACID
     Indication: MENORRHAGIA
     Dosage: 2
     Route: 048
     Dates: start: 20141008, end: 20150119
  2. TRANEXAMIC ACID 650MG TABLETS WATSON LABORATORIES, INC [Suspect]
     Active Substance: TRANEXAMIC ACID
     Indication: MENSTRUATION IRREGULAR
     Dosage: 2
     Route: 048
     Dates: start: 20141008, end: 20150119

REACTIONS (6)
  - Nausea [None]
  - Pain in extremity [None]
  - Fall [None]
  - Dizziness [None]
  - Syncope [None]
  - Abdominal pain upper [None]

NARRATIVE: CASE EVENT DATE: 20150119
